FAERS Safety Report 7560720-7 (Version None)
Quarter: 2011Q2

REPORT INFORMATION
  Report Type: 
  Country: None (occurrence: None)
  Receive Date: 20110621
  Receipt Date: 20110614
  Transmission Date: 20111010
  Serious: Yes (Hospitalization)
  Sender: FDA-Public Use
  Company Number: FR-TEVA-273152ISR

PATIENT
  Sex: Female
  Weight: 60 kg

DRUGS (13)
  1. LERCANIDIPINE [Concomitant]
     Indication: HYPERTENSION
     Dosage: 10 MILLIGRAM;
     Route: 048
     Dates: start: 20060101
  2. LENALIDOMIDE [Suspect]
     Dosage: 10 MILLIGRAM;
     Route: 048
     Dates: start: 20101111, end: 20101201
  3. FLUVASTATIN [Concomitant]
     Indication: DYSLIPIDAEMIA
     Dosage: 40 MILLIGRAM;
     Route: 048
     Dates: start: 19990101
  4. ACETYLSALICYLATE LYSINE [Concomitant]
     Indication: THROMBOSIS PROPHYLAXIS
     Dosage: 75 MILLIGRAM;
     Route: 048
     Dates: start: 19720101
  5. LEVOFLOXACIN [Concomitant]
     Indication: URINARY TRACT INFECTION
     Dosage: 500 MILLIGRAM;
     Route: 048
  6. FOSAVANCE [Concomitant]
     Indication: OSTEOPOROSIS
     Route: 048
     Dates: start: 19990101
  7. AUGMENTIN '125' [Concomitant]
     Indication: GASTROINTESTINAL HAEMORRHAGE
     Dosage: 18 GRAM;
     Route: 042
     Dates: start: 20101117, end: 20101118
  8. LENALIDOMIDE [Suspect]
     Indication: MULTIPLE MYELOMA
     Dosage: 10 MILLIGRAM;
     Route: 048
     Dates: start: 20091228, end: 20101109
  9. DEXAMETHASONE [Suspect]
     Indication: MULTIPLE MYELOMA
     Dosage: 20 MILLIGRAM;
     Route: 048
     Dates: start: 20091228, end: 20101109
  10. RILMENIDINE [Concomitant]
     Indication: HYPERTENSION
     Dosage: 4 MILLIGRAM;
     Route: 048
     Dates: start: 20060101
  11. PROPAFENONE HCL [Concomitant]
     Indication: SUPRAVENTRICULAR EXTRASYSTOLES
     Dosage: 1200 MILLIGRAM;
     Route: 048
     Dates: start: 20100128
  12. CEFIXIME [Concomitant]
     Indication: PYELONEPHRITIS
     Dosage: 800 MILLIGRAM;
     Route: 048
     Dates: start: 20100929, end: 20101017
  13. AUGMENTIN '125' [Concomitant]
     Indication: TRACHEITIS
     Dosage: 4 DOSAGE FORMS;
     Route: 048
     Dates: start: 20101026, end: 20101030

REACTIONS (1)
  - GASTROINTESTINAL HAEMORRHAGE [None]
